FAERS Safety Report 5419175-0 (Version None)
Quarter: 2007Q3

REPORT INFORMATION
  Report Type: 
  Country: None (occurrence: None)
  Receive Date: 20070815
  Receipt Date: 20070815
  Transmission Date: 20080115
  Serious: Yes (Life-Threatening)
  Sender: FDA-Public Use
  Company Number: None

PATIENT
  Age: 39 Year
  Sex: Female
  Weight: 161.4805 kg

DRUGS (2)
  1. ACTOS [Suspect]
     Indication: INSULIN RESISTANCE
     Dosage: 45 MCG DAILY PO
     Route: 048
     Dates: start: 20030720, end: 20070810
  2. ACTOS [Suspect]
     Indication: POLYCYSTIC OVARIES
     Dosage: 45 MCG DAILY PO
     Route: 048
     Dates: start: 20030720, end: 20070810

REACTIONS (7)
  - ACTIVITIES OF DAILY LIVING IMPAIRED [None]
  - DRUG EFFECT DECREASED [None]
  - EMOTIONAL DISTRESS [None]
  - FLUID RETENTION [None]
  - JOINT SWELLING [None]
  - OEDEMA PERIPHERAL [None]
  - WEIGHT INCREASED [None]
